FAERS Safety Report 4955734-7 (Version None)
Quarter: 2006Q1

REPORT INFORMATION
  Report Type: 
  Country: None (occurrence: None)
  Receive Date: 20060328
  Receipt Date: 20060320
  Transmission Date: 20060701
  Serious: Yes (Hospitalization)
  Sender: FDA-Public Use
  Company Number: FR-ROCHE-441249

PATIENT
  Age: 44 Year
  Sex: Male

DRUGS (6)
  1. PEGASYS [Suspect]
     Indication: HEPATITIS C
     Route: 058
     Dates: start: 20050216, end: 20060211
  2. COPEGUS [Suspect]
     Indication: HEPATITIS C
     Route: 048
     Dates: start: 20050216, end: 20060211
  3. TRANSIPEG [Concomitant]
  4. DOLIPRANE [Concomitant]
  5. HAVLANE [Concomitant]
  6. AMANTADINE HCL [Concomitant]
     Indication: HEPATITIS C

REACTIONS (1)
  - CHOLECYSTITIS [None]
